FAERS Safety Report 4873903-1 (Version None)
Quarter: 2006Q1

REPORT INFORMATION
  Report Type: 
  Country: None (occurrence: None)
  Receive Date: 20060105
  Receipt Date: 20060105
  Transmission Date: 20060701
  Serious: Yes (Death)
  Sender: FDA-Public Use
  Company Number: None

PATIENT
  Age: 37 Year
  Sex: Female
  Weight: 101.1521 kg

DRUGS (5)
  1. DOCETAXEL 75 MG/M2 IV Q 2 WKS X 6 CYCLES [Suspect]
     Indication: BREAST CANCER
     Dosage: 165 MG/M2 IV Q 2 WKS
     Route: 042
     Dates: start: 20051007, end: 20051212
  2. ALOXI [Concomitant]
  3. DECADRON [Concomitant]
  4. NEULASTA [Concomitant]
  5. ARENESP [Concomitant]

REACTIONS (16)
  - ASTHENIA [None]
  - CARDIAC ARREST [None]
  - GASTROINTESTINAL NECROSIS [None]
  - GENERAL PHYSICAL HEALTH DETERIORATION [None]
  - HYPERGLYCAEMIA [None]
  - INTESTINAL PERFORATION [None]
  - MENTAL STATUS CHANGES [None]
  - METABOLIC ACIDOSIS [None]
  - NAUSEA [None]
  - POLYDIPSIA [None]
  - POLYURIA [None]
  - RENAL FAILURE [None]
  - RESPIRATORY DISORDER [None]
  - THIRST [None]
  - VENTRICULAR FIBRILLATION [None]
  - VENTRICULAR TACHYCARDIA [None]
